FAERS Safety Report 21197036 (Version 2)
Quarter: 2022Q3

REPORT INFORMATION
  Report Type: Report from Study
  Country: US (occurrence: US)
  Receive Date: 20220810
  Receipt Date: 20220829
  Transmission Date: 20221027
  Serious: Yes (Other)
  Sender: FDA-Public Use
  Company Number: US-BIOVITRUM-2022US09404

PATIENT
  Sex: Female

DRUGS (1)
  1. KINERET [Suspect]
     Active Substance: ANAKINRA
     Indication: Rheumatoid arthritis
     Dates: start: 20211221

REACTIONS (6)
  - Pneumonia [Unknown]
  - Sinusitis [Unknown]
  - Depression [Unknown]
  - Maternal exposure during pregnancy [Unknown]
  - Ligament sprain [Unknown]
  - Product dose omission issue [Unknown]
